FAERS Safety Report 8898519 (Version 1)
Quarter: 2012Q4

REPORT INFORMATION
  Report Type: 
  Country: US (occurrence: US)
  Receive Date: 20121108
  Receipt Date: 20121108
  Transmission Date: 20130627
  Serious: No
  Sender: FDA-Public Use
  Company Number: US-AMGEN-USASP2012030120

PATIENT
  Age: 48 Year
  Sex: Female

DRUGS (1)
  1. ENBREL [Suspect]
     Indication: RHEUMATOID ARTHRITIS
     Dosage: 50 mg, qwk
     Dates: start: 20120201, end: 20120413

REACTIONS (9)
  - Rheumatoid arthritis [Not Recovered/Not Resolved]
  - Abdominal pain upper [Not Recovered/Not Resolved]
  - Vomiting [Not Recovered/Not Resolved]
  - Erythema [Not Recovered/Not Resolved]
  - Joint range of motion decreased [Not Recovered/Not Resolved]
  - Abasia [Not Recovered/Not Resolved]
  - Pain [Not Recovered/Not Resolved]
  - Urticaria [Not Recovered/Not Resolved]
  - Drug ineffective [Not Recovered/Not Resolved]
